FAERS Safety Report 9148680 (Version 1)
Quarter: 2013Q1

REPORT INFORMATION
  Report Type: Spontaneous
  Country: US (occurrence: US)
  Receive Date: 20130308
  Receipt Date: 20130308
  Transmission Date: 20140127
  Serious: No
  Sender: FDA-Public Use
  Company Number: US-ENDO PHARMACEUTICALS INC.-OPCR20122026

PATIENT
  Sex: Female

DRUGS (1)
  1. OPANA ER 20MG [Suspect]
     Indication: PRODUCT USED FOR UNKNOWN INDICATION
     Dosage: 20MG
     Route: 048
     Dates: start: 2012, end: 2012

REACTIONS (8)
  - Dyskinesia [Unknown]
  - Photophobia [Unknown]
  - Burning sensation [Unknown]
  - Generalised erythema [Unknown]
  - Anxiety [Unknown]
  - Condition aggravated [Unknown]
  - Retching [Unknown]
  - Heart rate increased [Unknown]
